FAERS Safety Report 25951677 (Version 2)
Quarter: 2025Q4

REPORT INFORMATION
  Report Type: Spontaneous
  Country: US (occurrence: US)
  Receive Date: 20251023
  Receipt Date: 20251029
  Transmission Date: 20260117
  Serious: Yes (Hospitalization, Other)
  Sender: MERCK SHARP & DOHME LLC
  Company Number: US-009507513-2338419

PATIENT
  Sex: Male

DRUGS (9)
  1. KEYTRUDA [Suspect]
     Active Substance: PEMBROLIZUMAB
     Indication: HER2 positive bladder cancer
     Dosage: 200 MG EVERY 3 WEEKS CYCLES: 2/3
     Route: 042
     Dates: start: 20250808, end: 20250923
  2. LIPITOR [Concomitant]
     Active Substance: ATORVASTATIN CALCIUM
  3. COENZYME Q10 [Concomitant]
     Active Substance: DIETARY SUPPLEMENT\UBIDECARENONE
  4. PEPCID [Concomitant]
     Active Substance: FAMOTIDINE
  5. AMLODIPINE [Concomitant]
     Active Substance: AMLODIPINE BESYLATE
  6. FERROUS SULFATE [Concomitant]
     Active Substance: FERROUS SULFATE
     Dosage: 325 MG (65 MG IRON)
     Route: 048
     Dates: start: 20221128
  7. OMEGA-3 ACIDS [Concomitant]
     Active Substance: OMEGA-3 FATTY ACIDS
     Dosage: 350 MG-235 MG-90 MG-597 MG CAPSULE.DELAYED RELEASE
     Dates: start: 20221128
  8. VENLAFAXINE [Concomitant]
     Active Substance: VENLAFAXINE HYDROCHLORIDE
     Dosage: 37.5 MG TABLET
     Dates: start: 20221128
  9. VITAMIN B12 [Concomitant]
     Active Substance: CYANOCOBALAMIN
     Dosage: 1,000 MCG TABLET
     Dates: start: 20221128

REACTIONS (15)
  - Malignant neoplasm progression [Unknown]
  - Drug intolerance [Unknown]
  - Tinnitus [Unknown]
  - Deafness [Unknown]
  - Renal failure [Recovering/Resolving]
  - Fatigue [Unknown]
  - Acute kidney injury [Unknown]
  - Neuropathy peripheral [Unknown]
  - Skin toxicity [Unknown]
  - Anaemia [Unknown]
  - Light chain analysis abnormal [Unknown]
  - Blood immunoglobulin G increased [Unknown]
  - Blood immunoglobulin A increased [Unknown]
  - Inflammation [Unknown]
  - Dyspnoea [Unknown]

NARRATIVE: CASE EVENT DATE: 20250101
